FAERS Safety Report 22704851 (Version 3)
Quarter: 2025Q1

REPORT INFORMATION
  Report Type: Spontaneous
  Country: US (occurrence: US)
  Receive Date: 20230714
  Receipt Date: 20250123
  Transmission Date: 20250409
  Serious: Yes (Other)
  Sender: SANDOZ
  Company Number: US-002147023-NVSC2023US149205

PATIENT
  Sex: Female

DRUGS (8)
  1. ENTRESTO [Suspect]
     Active Substance: SACUBITRIL\VALSARTAN
     Indication: Product used for unknown indication
     Dosage: 1 DOSAGE FORM, BID
     Route: 065
     Dates: start: 2020
  2. METHOTREXATE [Suspect]
     Active Substance: METHOTREXATE
     Indication: Product used for unknown indication
     Route: 065
  3. METOPROLOL [Suspect]
     Active Substance: METOPROLOL
     Indication: Product used for unknown indication
     Route: 065
     Dates: start: 2020
  4. PREDNISONE [Suspect]
     Active Substance: PREDNISONE
     Indication: Product used for unknown indication
     Route: 065
  5. FOLIC ACID [Concomitant]
     Active Substance: FOLIC ACID
     Indication: Product used for unknown indication
     Route: 065
  6. HUMIRA [Concomitant]
     Active Substance: ADALIMUMAB
     Indication: Product used for unknown indication
     Route: 065
  7. HUMIRA [Concomitant]
     Active Substance: ADALIMUMAB
     Route: 065
  8. HUMIRA [Concomitant]
     Active Substance: ADALIMUMAB
     Route: 065

REACTIONS (15)
  - Sarcoidosis [Unknown]
  - Starvation [Unknown]
  - Heart rate increased [Unknown]
  - Inflammation [Unknown]
  - Nasopharyngitis [Recovering/Resolving]
  - Sinus disorder [Recovering/Resolving]
  - Weight increased [Recovering/Resolving]
  - Insomnia [Recovering/Resolving]
  - Wound [Unknown]
  - Blood sodium decreased [Recovering/Resolving]
  - Blood magnesium abnormal [Recovering/Resolving]
  - Temperature intolerance [Unknown]
  - Weight fluctuation [Unknown]
  - Decreased appetite [Recovering/Resolving]
  - Fatigue [Unknown]
